FAERS Safety Report 9691500 (Version 3)
Quarter: 2014Q1

REPORT INFORMATION
  Report Type: Spontaneous
  Country: US (occurrence: US)
  Receive Date: 20131115
  Receipt Date: 20140107
  Transmission Date: 20141002
  Serious: Yes (Hospitalization, Other)
  Sender: FDA-Public Use
  Company Number: US-DENDREON CORPORATION-2013PROUSA03278

PATIENT
  Age: 74 Year
  Sex: Male
  Weight: 47.66 kg

DRUGS (2)
  1. PROVENGE [Suspect]
     Indication: PROSTATE CANCER METASTATIC
     Dosage: 250 ML, SINGLE
     Route: 042
     Dates: start: 20131024, end: 20131024
  2. ENZALUTAMIDE [Concomitant]
     Indication: PROSTATE CANCER

REACTIONS (4)
  - Myocardial infarction [Unknown]
  - Sepsis [Unknown]
  - Blood culture positive [Unknown]
  - Coronary artery disease [Unknown]
